FAERS Safety Report 8134689-0 (Version None)
Quarter: 2012Q1

REPORT INFORMATION
  Report Type: 
  Country: None (occurrence: None)
  Receive Date: 20120214
  Receipt Date: 20120210
  Transmission Date: 20120608
  Serious: No
  Sender: FDA-Public Use
  Company Number: US-PFIZER INC-2012017343

PATIENT
  Sex: Male
  Weight: 63.5 kg

DRUGS (1)
  1. RELPAX [Suspect]
     Indication: MIGRAINE
     Dosage: 40MG AS NEEDED, TWO OR THREE TIMES A DAY

REACTIONS (1)
  - MIGRAINE [None]
